FAERS Safety Report 8308741-0 (Version None)
Quarter: 2012Q1

REPORT INFORMATION
  Report Type: 
  Country: None (occurrence: None)
  Receive Date: 20120327
  Receipt Date: 20110311
  Transmission Date: 20120608
  Serious: Yes (Other)
  Sender: FDA-Public Use
  Company Number: PHHY2011US18011

PATIENT
  Age: 12 Year
  Sex: Male
  Weight: 51.5 kg

DRUGS (3)
  1. GLEEVEC [Suspect]
     Indication: GASTROINTESTINAL STROMAL TUMOUR
     Dosage: 400 MG, BID, ORAL
     Route: 048
     Dates: start: 20100806
  2. SINGULAIR [Concomitant]
  3. NAPMEL (NAPROXEN) [Concomitant]

REACTIONS (5)
  - NEUROPATHY PERIPHERAL [None]
  - BONE PAIN [None]
  - ASTHENIA [None]
  - MYALGIA [None]
  - NEURALGIA [None]
